FAERS Safety Report 20065717 (Version 1)
Quarter: 2021Q4

REPORT INFORMATION
  Report Type: Spontaneous
  Country: CZ (occurrence: CZ)
  Receive Date: 20211113
  Receipt Date: 20211113
  Transmission Date: 20220303
  Serious: Yes (Hospitalization, Other)
  Sender: FDA-Public Use
  Company Number: CZ-ABBVIE-21K-217-4160873-00

PATIENT
  Age: 45 Year
  Sex: Female
  Weight: 92 kg

DRUGS (5)
  1. VALPROATE SODIUM [Interacting]
     Active Substance: VALPROATE SODIUM
     Indication: Product used for unknown indication
     Dosage: UNK UNK, QD
     Route: 048
  2. WARFARIN SODIUM [Interacting]
     Active Substance: WARFARIN SODIUM
     Indication: Prophylaxis
     Route: 065
  3. WARFARIN SODIUM [Interacting]
     Active Substance: WARFARIN SODIUM
     Indication: Deep vein thrombosis
  4. LEVETIRACETAM [Interacting]
     Active Substance: LEVETIRACETAM
     Indication: Product used for unknown indication
     Route: 065
  5. SALMETEROL [Interacting]
     Active Substance: SALMETEROL
     Indication: Product used for unknown indication
     Route: 065

REACTIONS (7)
  - Skin necrosis [Recovered/Resolved]
  - Cellulitis [Recovered/Resolved]
  - International normalised ratio increased [Recovered/Resolved]
  - Erysipelas [Recovered/Resolved]
  - Petechiae [Recovered/Resolved]
  - Ecchymosis [Recovered/Resolved]
  - Haematoma [Recovered/Resolved]
